FAERS Safety Report 10057052 (Version 8)
Quarter: 2015Q1

REPORT INFORMATION
  Report Type: Report from Study
  Country: US (occurrence: US)
  Receive Date: 20140403
  Receipt Date: 20150102
  Transmission Date: 20150720
  Serious: Yes (Hospitalization, Other)
  Sender: FDA-Public Use
  Company Number: US-SA-2014SA001212

PATIENT
  Age: 50 Year
  Sex: Female

DRUGS (3)
  1. AUBAGIO [Suspect]
     Active Substance: TERIFLUNOMIDE
     Indication: MULTIPLE SCLEROSIS
     Route: 048
  2. AUBAGIO [Suspect]
     Active Substance: TERIFLUNOMIDE
     Indication: MULTIPLE SCLEROSIS
     Route: 048
     Dates: end: 20140327
  3. AUBAGIO [Suspect]
     Active Substance: TERIFLUNOMIDE
     Indication: MULTIPLE SCLEROSIS
     Route: 048
     Dates: start: 20131226, end: 20140125

REACTIONS (32)
  - Catheterisation cardiac [Unknown]
  - Depression [Not Recovered/Not Resolved]
  - Blood pressure increased [Recovering/Resolving]
  - Pancreatic enzymes increased [Recovering/Resolving]
  - Headache [Unknown]
  - Oropharyngeal pain [Recovering/Resolving]
  - Syncope [Unknown]
  - Memory impairment [Unknown]
  - Depressed mood [Unknown]
  - Crying [Unknown]
  - Gait disturbance [Recovering/Resolving]
  - Dysstasia [Unknown]
  - Multiple sclerosis relapse [Unknown]
  - Unevaluable event [Unknown]
  - Dyspnoea [Recovered/Resolved]
  - Impaired driving ability [Not Recovered/Not Resolved]
  - Chest pain [Recovering/Resolving]
  - Malaise [Unknown]
  - Muscle twitching [Not Recovered/Not Resolved]
  - Weight decreased [Unknown]
  - Drug dose omission [Unknown]
  - Malaise [Recovering/Resolving]
  - Visual impairment [Not Recovered/Not Resolved]
  - Asthenia [Unknown]
  - Dizziness [Unknown]
  - Muscular weakness [Unknown]
  - Fatigue [Unknown]
  - Vertigo [Not Recovered/Not Resolved]
  - Paraesthesia [Unknown]
  - Loss of consciousness [Unknown]
  - Sleep disorder [Unknown]
  - Hypoaesthesia [Not Recovered/Not Resolved]

NARRATIVE: CASE EVENT DATE: 201401
